FAERS Safety Report 15920320 (Version 1)
Quarter: 2019Q1

REPORT INFORMATION
  Report Type: Spontaneous
  Country: GB (occurrence: GB)
  Receive Date: 20190205
  Receipt Date: 20190205
  Transmission Date: 20190417
  Serious: Yes (Hospitalization, Other)
  Sender: FDA-Public Use
  Company Number: GB-BAYER-2019-019888

PATIENT
  Sex: Female

DRUGS (2)
  1. MIRENA [Suspect]
     Active Substance: LEVONORGESTREL
     Dosage: 20 MCG/24HR, CONT
     Route: 015
  2. MIRENA [Suspect]
     Active Substance: LEVONORGESTREL

REACTIONS (5)
  - Device dislocation [Unknown]
  - Ovarian cyst [Unknown]
  - Mood altered [Unknown]
  - Suicidal ideation [Unknown]
  - Discomfort [Recovered/Resolved]

NARRATIVE: CASE EVENT DATE: 20180917
